FAERS Safety Report 9350426 (Version 2)
Quarter: 2014Q1

REPORT INFORMATION
  Report Type: Spontaneous
  Country: US (occurrence: US)
  Receive Date: 20130617
  Receipt Date: 20140311
  Transmission Date: 20141002
  Serious: Yes (Death)
  Sender: FDA-Public Use
  Company Number: US-PFIZER INC-2013174513

PATIENT
  Age: 85 Year
  Sex: Female

DRUGS (2)
  1. REVATIO [Suspect]
     Indication: PULMONARY ARTERIAL HYPERTENSION
     Dosage: 20 MG, 3X/DAY
     Dates: start: 20120323
  2. REVATIO [Suspect]
     Dosage: 20 MG, 2X/DAY

REACTIONS (2)
  - Cardiac arrest [Fatal]
  - Blood pressure decreased [Unknown]
